FAERS Safety Report 10452133 (Version 1)
Quarter: 2014Q3

REPORT INFORMATION
  Report Type: Spontaneous
  Country: US (occurrence: None)
  Receive Date: 20140912
  Receipt Date: 20140912
  Transmission Date: 20150326
  Serious: Yes (Other)
  Sender: FDA-Public Use
  Company Number: None

PATIENT
  Age: 71 Year
  Sex: Female

DRUGS (2)
  1. METOPROLOL [Concomitant]
     Active Substance: METOPROLOL
  2. ARIMIDEX [Suspect]
     Active Substance: ANASTROZOLE
     Indication: BREAST CANCER
     Dosage: 1 TAB, QD

REACTIONS (4)
  - Trigger finger [None]
  - Musculoskeletal pain [None]
  - Arthralgia [None]
  - Musculoskeletal disorder [None]

NARRATIVE: CASE EVENT DATE: 20140911
